FAERS Safety Report 5277690-7 (Version None)
Quarter: 2007Q1

REPORT INFORMATION
  Report Type: 
  Country: None (occurrence: None)
  Receive Date: 20070327
  Receipt Date: 20070315
  Transmission Date: 20070707
  Serious: Yes (Death)
  Sender: FDA-Public Use
  Company Number: US-PFIZER INC-2006043873

PATIENT
  Sex: Male
  Weight: 107.7 kg

DRUGS (1)
  1. CELEBREX [Suspect]

REACTIONS (1)
  - THROMBOSIS [None]
